FAERS Safety Report 5276835-2 (Version None)
Quarter: 2007Q1

REPORT INFORMATION
  Report Type: 
  Country: None (occurrence: None)
  Receive Date: 20070327
  Receipt Date: 20070316
  Transmission Date: 20070707
  Serious: Yes (Other)
  Sender: FDA-Public Use
  Company Number: DE-JNJFOC-20070305747

PATIENT
  Sex: Male

DRUGS (2)
  1. TRAMADOL HCL [Suspect]
     Indication: DRUG USE FOR UNKNOWN INDICATION
     Route: 048
  2. TRAMADOL HCL [Suspect]
     Route: 048

REACTIONS (3)
  - DRUG DEPENDENCE [None]
  - EPILEPSY [None]
  - HEADACHE [None]
